FAERS Safety Report 12809214 (Version 2)
Quarter: 2021Q1

REPORT INFORMATION
  Report Type: Spontaneous
  Country: FR (occurrence: FR)
  Receive Date: 20161004
  Receipt Date: 20210309
  Transmission Date: 20210419
  Serious: Yes (Hospitalization, Other)
  Sender: FDA-Public Use
  Company Number: FR-009507513-1610FRA000703

PATIENT
  Age: 46 Year
  Sex: Male

DRUGS (12)
  1. GABAPENTIN. [Concomitant]
     Active Substance: GABAPENTIN
  2. LYRICA [Concomitant]
     Active Substance: PREGABALIN
  3. TROPATEPINE [Concomitant]
     Active Substance: TROPATEPINE
     Dosage: UNK
  4. PIPERACILLIN SODIUM (+) SODIUM CHLORIDE (+) TAZOBACTAM SODIUM [Suspect]
     Active Substance: PIPERACILLIN SODIUM\TAZOBACTAM SODIUM
     Indication: BACTERAEMIA
     Dosage: 4 G, TID
     Route: 042
     Dates: start: 20160815, end: 20160901
  5. ACTISKENAN [Concomitant]
     Active Substance: MORPHINE SULFATE
  6. PERFALGAN [Concomitant]
     Active Substance: ACETAMINOPHEN
  7. LEPTICUR [Concomitant]
     Active Substance: TROPATEPINE HYDROCHLORIDE
  8. CUBICIN [Suspect]
     Active Substance: DAPTOMYCIN
     Indication: BACTERAEMIA
     Dosage: UNK
     Route: 042
     Dates: start: 20160818, end: 20160901
  9. MORPHINE SULFATE. [Concomitant]
     Active Substance: MORPHINE SULFATE
     Dosage: UNK
  10. RIMACTAN [Suspect]
     Active Substance: RIFAMPIN
     Indication: BACTERAEMIA
     Dosage: 300 MG, BID
     Route: 048
     Dates: start: 20160824, end: 20160901
  11. ATARAX [Concomitant]
     Active Substance: HYDROXYZINE HYDROCHLORIDE
  12. LEVOTHYROX [Concomitant]
     Active Substance: LEVOTHYROXINE

REACTIONS (2)
  - Hepatitis [Recovering/Resolving]
  - Pyrexia [Recovered/Resolved]

NARRATIVE: CASE EVENT DATE: 2016
